FAERS Safety Report 16591591 (Version 4)
Quarter: 2024Q2

REPORT INFORMATION
  Report Type: Spontaneous
  Country: US (occurrence: US)
  Receive Date: 20190718
  Receipt Date: 20240408
  Transmission Date: 20240716
  Serious: Yes (Hospitalization, Other)
  Sender: FDA-Public Use
  Company Number: US-PFIZER INC-2019292965

PATIENT
  Age: 6 Year
  Sex: Male
  Weight: 27.5 kg

DRUGS (2)
  1. SOMATROPIN [Suspect]
     Active Substance: SOMATROPIN
     Indication: Hypoglycaemia
     Dosage: 0.4 MG, DAILY
     Dates: start: 201412
  2. SOMATROPIN [Suspect]
     Active Substance: SOMATROPIN
     Indication: Growth hormone deficiency
     Dosage: 0.4 MG, DAILY
     Dates: start: 20150304, end: 202009

REACTIONS (7)
  - Seizure [Unknown]
  - Hypoglycaemia [Unknown]
  - Septo-optic dysplasia [Unknown]
  - Hydronephrosis [Unknown]
  - Renal dysplasia [Unknown]
  - Cardiac disorder [Unknown]
  - Weight gain poor [Unknown]
